FAERS Safety Report 7493659-6 (Version None)
Quarter: 2011Q2

REPORT INFORMATION
  Report Type: 
  Country: None (occurrence: None)
  Receive Date: 20110520
  Receipt Date: 20110427
  Transmission Date: 20111010
  Serious: Yes (Hospitalization, Other)
  Sender: FDA-Public Use
  Company Number: US-BAYER-201016129NA

PATIENT
  Age: 48 Year
  Sex: Female
  Weight: 143 kg

DRUGS (17)
  1. YASMIN [Suspect]
     Indication: DYSMENORRHOEA
  2. LEVONORGESTREL [Concomitant]
     Route: 048
  3. ONE-A-DAY [VIT C,B12,D2,B3,B6,RETINOL,B2,B1 MONONITR] [Concomitant]
     Dosage: UNK UNK, QID
     Route: 048
  4. ALLEGRA [Concomitant]
     Dosage: 18 MG, QID
     Route: 048
  5. LOESTRIN 1.5/30 [Suspect]
     Dosage: UNK
     Dates: start: 20080301, end: 20080601
  6. LOESTRIN FE 1/20 [Suspect]
     Dosage: UNK
     Dates: start: 20090801, end: 20100201
  7. PRILOSEC [Concomitant]
     Dosage: UNK UNK, QD
  8. CALCIUM CARBONATE [Concomitant]
     Route: 048
  9. DIOVAN HCT [Concomitant]
     Dosage: UNK UNK, QID
     Route: 048
  10. YASMIN [Suspect]
     Indication: MENORRHAGIA
     Dosage: UNK UNK, UNK
     Route: 048
     Dates: start: 20080401, end: 20090501
  11. XOPENEX [Concomitant]
     Dosage: UNK UNK, PRN
  12. SPIRIVA [Concomitant]
     Dosage: UNK UNK, QD
     Route: 048
  13. SYNTHROID [Concomitant]
     Dosage: 100 ?G, CONT
     Route: 048
  14. AZMACORT [Concomitant]
     Dosage: UNK UNK, QID
  15. SINGULAIR [Concomitant]
     Dosage: UNK UNK, QD
  16. FLONASE [Concomitant]
     Route: 045
  17. CAMILA [Suspect]
     Dosage: UNK
     Dates: start: 20080625, end: 20080801

REACTIONS (3)
  - PANCREATITIS [None]
  - CHOLECYSTITIS CHRONIC [None]
  - CHOLECYSTECTOMY [None]
